FAERS Safety Report 6375848-7 (Version None)
Quarter: 2009Q3

REPORT INFORMATION
  Report Type: 
  Country: None (occurrence: None)
  Receive Date: 20090924
  Receipt Date: 20090917
  Transmission Date: 20100115
  Serious: Yes (Hospitalization)
  Sender: FDA-Public Use
  Company Number: US-GILEAD-2009-0023622

PATIENT
  Sex: Female
  Weight: 44.038 kg

DRUGS (10)
  1. LETAIRIS [Suspect]
     Indication: PULMONARY ARTERIAL HYPERTENSION
     Route: 048
     Dates: start: 20090804
  2. REVATIO [Concomitant]
  3. LASIX [Concomitant]
  4. LANOXIN [Concomitant]
  5. REMODULIN [Concomitant]
  6. TOPROL-XL [Concomitant]
  7. PROTONIX [Concomitant]
  8. OXYCODONE [Concomitant]
  9. BENADRYL [Concomitant]
  10. KLOR-CON [Concomitant]

REACTIONS (6)
  - CHEST DISCOMFORT [None]
  - DYSPNOEA [None]
  - FLUID RETENTION [None]
  - NASAL CONGESTION [None]
  - OEDEMA PERIPHERAL [None]
  - THROAT IRRITATION [None]
